FAERS Safety Report 18537913 (Version 2)
Quarter: 2020Q4

REPORT INFORMATION
  Report Type: Spontaneous
  Country: US (occurrence: US)
  Receive Date: 20201124
  Receipt Date: 20201217
  Transmission Date: 20210114
  Serious: No
  Sender: FDA-Public Use
  Company Number: US-BIOGEN-2020BI00945523

PATIENT
  Age: 31 Year
  Sex: Female

DRUGS (1)
  1. TECFIDERA [Suspect]
     Active Substance: DIMETHYL FUMARATE
     Indication: MULTIPLE SCLEROSIS
     Route: 048
     Dates: start: 20200713, end: 20201102

REACTIONS (6)
  - Rash [Recovered/Resolved]
  - Dry mouth [Recovered/Resolved]
  - Flushing [Recovered/Resolved]
  - Haemorrhoids [Recovered/Resolved]
  - Skin burning sensation [Recovered/Resolved]
  - Pharyngeal mass [Recovered/Resolved]

NARRATIVE: CASE EVENT DATE: 20200713
